FAERS Safety Report 20208314 (Version 3)
Quarter: 2023Q4

REPORT INFORMATION
  Report Type: Report from Study
  Country: BR (occurrence: BR)
  Receive Date: 20211220
  Receipt Date: 20231003
  Transmission Date: 20240110
  Serious: Yes (Other)
  Sender: FDA-Public Use
  Company Number: BR-TAKEDA-BR202019713

PATIENT
  Sex: Male
  Weight: 50 kg

DRUGS (5)
  1. HEMO-8R [Suspect]
     Active Substance: ANTIHEMOPHILIC FACTOR, HUMAN RECOMBINANT
     Indication: Factor VIII deficiency
     Dosage: 1250 INTERNATIONAL UNIT, QOD
     Route: 042
     Dates: start: 19850102
  2. HEMO-8R [Suspect]
     Active Substance: ANTIHEMOPHILIC FACTOR, HUMAN RECOMBINANT
     Dosage: 1250 INTERNATIONAL UNIT, QOD
     Route: 042
  3. HEMO-8R [Suspect]
     Active Substance: ANTIHEMOPHILIC FACTOR, HUMAN RECOMBINANT
     Dosage: 1500 INTERNATIONAL UNIT, 3/WEEK
     Route: 042
  4. TENOVIR [Concomitant]
     Indication: HIV infection
     Dosage: 1 DOSAGE FORM, QD
     Route: 065
  5. RITONAVIR [Concomitant]
     Active Substance: RITONAVIR
     Indication: HIV infection
     Dosage: 1 DOSAGE FORM, QD
     Route: 065

REACTIONS (4)
  - Pneumonia [Recovered/Resolved]
  - Seizure [Not Recovered/Not Resolved]
  - Intracranial aneurysm [Not Recovered/Not Resolved]
  - Arthropathy [Unknown]
